FAERS Safety Report 21628162 (Version 1)
Quarter: 2022Q4

REPORT INFORMATION
  Report Type: Spontaneous
  Country: BA (occurrence: BA)
  Receive Date: 20221122
  Receipt Date: 20221122
  Transmission Date: 20230113
  Serious: Yes (Other)
  Sender: FDA-Public Use
  Company Number: BA-UCBSA-2022067062

PATIENT
  Sex: Female

DRUGS (6)
  1. KEPPRA [Suspect]
     Active Substance: LEVETIRACETAM
     Indication: Product used for unknown indication
     Dosage: 250 MILLIGRAM, 2X/DAY (BID)
  2. KEPPRA [Suspect]
     Active Substance: LEVETIRACETAM
     Dosage: 500 MILLIGRAM, 2X/DAY (BID)
  3. KEPPRA [Suspect]
     Active Substance: LEVETIRACETAM
     Dosage: 750 MILLIGRAM, 2X/DAY (BID)
  4. KEPPRA [Suspect]
     Active Substance: LEVETIRACETAM
     Dosage: 1000 MILLIGRAM, 2X/DAY (BID)
  5. FOLIC ACID [Concomitant]
     Active Substance: FOLIC ACID
     Indication: Product used for unknown indication
  6. DIAZEPAM [Concomitant]
     Active Substance: DIAZEPAM
     Indication: Product used for unknown indication

REACTIONS (2)
  - Altered state of consciousness [Recovered/Resolved]
  - Maternal exposure during pregnancy [Unknown]
